FAERS Safety Report 7891060-4 (Version None)
Quarter: 2011Q4

REPORT INFORMATION
  Report Type: 
  Country: None (occurrence: None)
  Receive Date: 20111103
  Receipt Date: 20110728
  Transmission Date: 20120403
  Serious: No
  Sender: FDA-Public Use
  Company Number: US-AMGEN-USASP2011038417

PATIENT
  Age: 63 Year
  Sex: Female

DRUGS (1)
  1. ENBREL [Suspect]
     Dosage: UNK UNK, QWK
     Dates: start: 20110303, end: 20110419

REACTIONS (1)
  - INJECTION SITE PRURITUS [None]
